FAERS Safety Report 7375133-0 (Version None)
Quarter: 2011Q1

REPORT INFORMATION
  Report Type: 
  Country: None (occurrence: None)
  Receive Date: 20110325
  Receipt Date: 20110315
  Transmission Date: 20110831
  Serious: Yes (Hospitalization, Other)
  Sender: FDA-Public Use
  Company Number: US-KINGPHARMUSA00001-K201100288

PATIENT
  Age: 30 Year
  Sex: Male
  Weight: 79.819 kg

DRUGS (7)
  1. EMBEDA [Suspect]
     Indication: PAIN
     Dosage: 30 MG, EVERY 12 HOURS
     Route: 048
     Dates: start: 20101101
  2. XANAX [Concomitant]
     Indication: PANIC ATTACK
     Dosage: 30 MG, UNK
  3. LEXAPRO [Concomitant]
     Indication: ANXIETY
  4. XANAX [Concomitant]
     Indication: POST-TRAUMATIC STRESS DISORDER
  5. COUMADIN [Concomitant]
     Indication: DEEP VEIN THROMBOSIS
     Dosage: UNK
     Dates: start: 20110101
  6. OXYCODONE [Concomitant]
     Indication: BREAKTHROUGH PAIN
     Dosage: 10 MG, Q4H
  7. LEXAPRO [Concomitant]
     Indication: DEPRESSION
     Dosage: 20 MG, UNK

REACTIONS (7)
  - PYREXIA [None]
  - HYPERHIDROSIS [None]
  - DEEP VEIN THROMBOSIS [None]
  - DRUG EFFECT DECREASED [None]
  - BODY TEMPERATURE FLUCTUATION [None]
  - HOSPITALISATION [None]
  - MALAISE [None]
